FAERS Safety Report 10259096 (Version 1)
Quarter: 2014Q2

REPORT INFORMATION
  Report Type: Spontaneous
  Country: US (occurrence: US)
  Receive Date: 20140625
  Receipt Date: 20140625
  Transmission Date: 20141212
  Serious: No
  Sender: FDA-Public Use
  Company Number: US-ASTELLAS-2013US011803

PATIENT
  Sex: Female
  Weight: 54 kg

DRUGS (4)
  1. VESICARE [Suspect]
     Indication: URINARY INCONTINENCE
     Route: 048
     Dates: start: 201310
  2. ANTIHYPERTENSIVES [Concomitant]
     Indication: BLOOD PRESSURE
     Route: 065
  3. MUSCLE RELAXANTS [Concomitant]
     Indication: MUSCLE RELAXANT THERAPY
     Route: 065
  4. MULTIVITAMINS, COMBINATIONS [Concomitant]
     Indication: VITAMIN SUPPLEMENTATION
     Dosage: Q
     Route: 065

REACTIONS (1)
  - Drug ineffective [Unknown]
